FAERS Safety Report 9198935 (Version 2)
Quarter: 2013Q2

REPORT INFORMATION
  Report Type: Spontaneous
  Country: AU (occurrence: AU)
  Receive Date: 20130329
  Receipt Date: 20130606
  Transmission Date: 20140414
  Serious: Yes (Death)
  Sender: FDA-Public Use
  Company Number: AU-009507513-1303AUS014123

PATIENT
  Sex: 0

DRUGS (1)
  1. TEMODAL [Suspect]
     Indication: CENTRAL NERVOUS SYSTEM LYMPHOMA
     Dosage: DAILY DOSE OF 150-200 MG/M2 ON DAY 1 TO DAY 5 EVERY 4 WEEKS

REACTIONS (1)
  - Infection [Fatal]
